FAERS Safety Report 4738004-1 (Version None)
Quarter: 2005Q3

REPORT INFORMATION
  Report Type: 
  Country: None (occurrence: None)
  Receive Date: 20050803
  Receipt Date: 20050728
  Transmission Date: 20060218
  Serious: Yes (Hospitalization)
  Sender: FDA-Public Use
  Company Number: 200512259GDS

PATIENT
  Age: 83 Year
  Sex: Female

DRUGS (12)
  1. CIPROFLOXACIN [Suspect]
     Indication: CHROMATURIA
     Dosage: ORAL
     Route: 048
     Dates: start: 20050508, end: 20050513
  2. CIPROFLOXACIN [Suspect]
     Indication: URINARY TRACT INFECTION
     Dosage: ORAL
     Route: 048
     Dates: start: 20050508, end: 20050513
  3. PANTOPRAZOLE SODIUM [Suspect]
     Dosage: 20 MG, TOTAL DAILY, ORAL
     Route: 048
     Dates: end: 20050518
  4. NEO-MERCAZOLE TAB [Suspect]
     Indication: THYROID DISORDER
     Dosage: 5 MG, TOTAL DAILY, ORAL
     Route: 048
     Dates: end: 20050527
  5. MABTHERA (RITUXIMAB) [Suspect]
     Indication: B-CELL LYMPHOMA
     Dosage: 525 MG, TOTAL DAILY, INTRAVENOUS
     Route: 042
     Dates: start: 20041112, end: 20050308
  6. CYCLOPHOSPHAMIDE [Suspect]
     Indication: B-CELL LYMPHOMA
     Dosage: 900 MG, TOTAL DAILY,  INTRAVENOUS
     Route: 042
     Dates: start: 20040112, end: 20050308
  7. DOXORUBICIN HYDROCHLORIDE [Suspect]
     Indication: B-CELL LYMPHOMA
     Dosage: 80 MG, TOTAL DAILY, INTRAVENOUS
     Route: 042
     Dates: start: 20041112, end: 20050308
  8. ONCOVIN [Suspect]
     Indication: B-CELL LYMPHOMA
     Dosage: 1.8 MG, TOTAL DAILY, INTRAVENOUS
     Route: 042
     Dates: start: 20041112, end: 20050308
  9. PREDNISONE [Suspect]
  10. CALPEROS [Concomitant]
  11. TORSEMIDE [Concomitant]
  12. METOPROLOL SUCCINATE [Concomitant]

REACTIONS (6)
  - COAGULATION TIME PROLONGED [None]
  - DISEASE RECURRENCE [None]
  - HEPATITIS CHRONIC ACTIVE [None]
  - HEPATITIS TOXIC [None]
  - HEPATITIS VIRAL [None]
  - JAUNDICE HEPATOCELLULAR [None]
